FAERS Safety Report 6806475-2 (Version None)
Quarter: 2010Q2

REPORT INFORMATION
  Report Type: 
  Country: None (occurrence: None)
  Receive Date: 20100629
  Receipt Date: 20100614
  Transmission Date: 20101027
  Serious: Yes (Hospitalization)
  Sender: FDA-Public Use
  Company Number: SE-AMGEN-US161413

PATIENT
  Sex: Female

DRUGS (13)
  1. ENBREL [Suspect]
     Indication: RHEUMATOID ARTHRITIS
     Route: 058
     Dates: start: 20031113, end: 20040119
  2. LEVOTHYROXINE SODIUM [Concomitant]
     Indication: HYPOTHYROIDISM
  3. ALVEDON [Concomitant]
  4. LAXABON [Concomitant]
  5. DOLCONTIN [Concomitant]
  6. PREDNISOLONE [Concomitant]
  7. LACTULOSE [Concomitant]
  8. LANZOR [Concomitant]
  9. HUMALOG [Concomitant]
     Indication: DIABETES MELLITUS
  10. KALCIPOS-D [Concomitant]
  11. LANTUS [Concomitant]
     Indication: DIABETES MELLITUS
  12. FOSAMAX [Concomitant]
  13. BRUFEN - SLOW RELEASE [Concomitant]

REACTIONS (2)
  - ALVEOLITIS FIBROSING [None]
  - MUSCULOSKELETAL DISCOMFORT [None]
